FAERS Safety Report 9198537 (Version 1)
Quarter: 2013Q1

REPORT INFORMATION
  Report Type: Spontaneous
  Country: BE (occurrence: None)
  Receive Date: 20130327
  Receipt Date: 20130327
  Transmission Date: 20140127
  Serious: Yes (Death, Hospitalization)
  Sender: FDA-Public Use
  Company Number: LORA20130002

PATIENT
  Age: 65 Year
  Sex: Female

DRUGS (2)
  1. VENLAFAXINE HCL [Suspect]
     Indication: OVERDOSE
     Route: 048
  2. LORAZEPAM [Suspect]
     Indication: OVERDOSE
     Route: 048

REACTIONS (6)
  - Cardiogenic shock [None]
  - Electrocardiogram QRS complex prolonged [None]
  - Somnolence [None]
  - Blood lactic acid increased [None]
  - Left ventricular dysfunction [None]
  - Overdose [None]
